FAERS Safety Report 8959533 (Version 1)
Quarter: 2012Q4

REPORT INFORMATION
  Report Type: 
  Country: CH (occurrence: CH)
  Receive Date: 20121212
  Receipt Date: 20121212
  Transmission Date: 20130627
  Serious: Yes (Hospitalization)
  Sender: FDA-Public Use
  Company Number: CH-ROCHE-1166000

PATIENT
  Age: 74 Year
  Sex: Female
  Weight: 62 kg

DRUGS (14)
  1. MABTHERA [Suspect]
     Indication: B-CELL LYMPHOMA
     Route: 041
     Dates: start: 20121029, end: 20121029
  2. RIBOMUSTIN [Suspect]
     Indication: B-CELL LYMPHOMA
     Route: 041
     Dates: start: 20121029, end: 20121030
  3. ZYLORIC [Suspect]
     Indication: PRODUCT USED FOR UNKNOWN INDICATION
     Route: 048
     Dates: start: 20121029, end: 20121030
  4. AMIODARONE [Concomitant]
     Route: 048
  5. CALCIMAGON-D3 [Concomitant]
     Route: 048
  6. ELTROXIN [Concomitant]
     Indication: HYPOTHYROIDISM
     Route: 048
  7. ESOMEPRAZOLE MAGNESIUM [Concomitant]
     Route: 048
  8. NOVALGIN [Concomitant]
     Route: 048
  9. PRAVALOTIN [Concomitant]
     Route: 048
  10. TORASEM [Concomitant]
     Route: 048
  11. TAVEGYL [Concomitant]
     Route: 041
     Dates: start: 20121029, end: 20121029
  12. ONDANSETRON [Concomitant]
     Route: 041
     Dates: start: 20121029, end: 20121031
  13. HEPARIN ^ROCHE^ [Concomitant]
     Route: 041
     Dates: start: 20120920
  14. SOLU-MEDROL [Concomitant]

REACTIONS (3)
  - Rash maculo-papular [Recovering/Resolving]
  - Pruritus [Recovered/Resolved]
  - Skin exfoliation [Recovering/Resolving]
